FAERS Safety Report 9383667 (Version 1)
Quarter: 2013Q3

REPORT INFORMATION
  Report Type: Spontaneous
  Country: FR (occurrence: FR)
  Receive Date: 20130704
  Receipt Date: 20130704
  Transmission Date: 20140515
  Serious: Yes (Other)
  Sender: FDA-Public Use
  Company Number: FR-ASTRAZENECA-2013SE48941

PATIENT
  Age: 20829 Day
  Sex: Female

DRUGS (7)
  1. INEXIUM [Suspect]
     Route: 048
     Dates: start: 20130423, end: 20130430
  2. SERESTA [Concomitant]
  3. SEROPLEX [Concomitant]
  4. LEVECIRACETAM [Concomitant]
  5. SPASFON [Concomitant]
  6. SPIRONOLACTONE [Concomitant]
  7. OMEPRAZOLE [Concomitant]

REACTIONS (1)
  - Toxic skin eruption [Recovered/Resolved]
